FAERS Safety Report 24687637 (Version 9)
Quarter: 2025Q1

REPORT INFORMATION
  Report Type: Spontaneous
  Country: CO (occurrence: CO)
  Receive Date: 20241202
  Receipt Date: 20250310
  Transmission Date: 20250409
  Serious: No
  Sender: PFIZER
  Company Number: CO-PFIZER INC-PV202400153219

PATIENT
  Age: 12 Year
  Sex: Male

DRUGS (2)
  1. GENOTROPIN [Suspect]
     Active Substance: SOMATROPIN
     Indication: Short stature
     Dosage: 1 MG, DAILY
     Route: 058
     Dates: start: 202410
  2. GENOTROPIN [Suspect]
     Active Substance: SOMATROPIN
     Dosage: 1.2 MG, DAILY
     Route: 058

REACTIONS (13)
  - Device leakage [Unknown]
  - Device occlusion [Unknown]
  - Device information output issue [Unknown]
  - Device delivery system issue [Unknown]
  - Device power source issue [Unknown]
  - Wrong technique in device usage process [Unknown]
  - Poor quality device used [Unknown]
  - Incorrect dose administered by device [Unknown]
  - Drug dose omission by device [Unknown]
  - Injection site pain [Unknown]
  - Injection site haemorrhage [Unknown]
  - Pyrexia [Unknown]
  - Somnolence [Unknown]

NARRATIVE: CASE EVENT DATE: 20241115
